FAERS Safety Report 6011417-6 (Version None)
Quarter: 2008Q4

REPORT INFORMATION
  Report Type: 
  Country: None (occurrence: None)
  Receive Date: 20081218
  Receipt Date: 19981230
  Transmission Date: 20090506
  Serious: Yes (Death, Hospitalization)
  Sender: FDA-Public Use
  Company Number: AU-ROCHE-111248

PATIENT
  Sex: Female

DRUGS (8)
  1. CAPECITABINE [Suspect]
     Indication: BREAST CANCER
     Dosage: TAKEN ON DAYS 1 -14, EVERY 21 DAY CYCLE.
     Route: 048
     Dates: start: 19981117, end: 19981221
  2. DUPHALAC [Suspect]
     Indication: CONSTIPATION
     Route: 065
     Dates: start: 19981212
  3. AROPAX [Suspect]
     Indication: DEPRESSION
     Route: 048
  4. ZANTAC [Concomitant]
     Route: 048
     Dates: start: 19981201
  5. LIPEX [Concomitant]
  6. RECTINOL [Concomitant]
  7. TEMAZEPAM [Concomitant]
     Route: 048
  8. APD [Concomitant]
     Route: 042

REACTIONS (9)
  - BREAST CANCER METASTATIC [None]
  - DEHYDRATION [None]
  - DIARRHOEA [None]
  - INTESTINAL PERFORATION [None]
  - INTESTINAL ULCER [None]
  - LARGE INTESTINAL OBSTRUCTION [None]
  - NEUTROPENIA [None]
  - SEPSIS [None]
  - VOMITING [None]
